FAERS Safety Report 11309989 (Version 1)
Quarter: 2015Q3

REPORT INFORMATION
  Report Type: Report from Study
  Country: TN (occurrence: TN)
  Receive Date: 20150724
  Receipt Date: 20150724
  Transmission Date: 20151125
  Serious: Yes (Other)
  Sender: FDA-Public Use
  Company Number: TN-PFIZER INC-2015246595

PATIENT
  Age: 27 Year
  Sex: Female

DRUGS (1)
  1. LINCOMYCIN HCL [Suspect]
     Active Substance: LINCOMYCIN HYDROCHLORIDE
     Dosage: UNK

REACTIONS (1)
  - Toxic epidermal necrolysis [Unknown]
